FAERS Safety Report 6503117-0 (Version None)
Quarter: 2009Q4

REPORT INFORMATION
  Report Type: 
  Country: None (occurrence: None)
  Receive Date: 20091217
  Receipt Date: 20091210
  Transmission Date: 20100525
  Serious: Yes (Other)
  Sender: FDA-Public Use
  Company Number: PHEH2009US16528

PATIENT
  Sex: Male

DRUGS (3)
  1. EXJADE [Suspect]
     Indication: HAEMOSIDEROSIS
     Dosage: 250 MG, TID
     Route: 048
     Dates: start: 20091030, end: 20091117
  2. FUROSEMIDE [Concomitant]
     Dosage: 40 MG 3 TABS BID
     Route: 048
  3. CENTRUM [Concomitant]

REACTIONS (8)
  - ASCITES [None]
  - BLOOD PRESSURE DECREASED [None]
  - BLOOD UREA INCREASED [None]
  - CREATININE RENAL CLEARANCE INCREASED [None]
  - GLOMERULAR FILTRATION RATE DECREASED [None]
  - OEDEMA [None]
  - PARACENTESIS [None]
  - RENAL IMPAIRMENT [None]
